FAERS Safety Report 4598121-6 (Version None)
Quarter: 2005Q1

REPORT INFORMATION
  Report Type: 
  Country: None (occurrence: None)
  Receive Date: 20050204
  Receipt Date: 20040220
  Transmission Date: 20050727
  Serious: Yes (Other)
  Sender: FDA-Public Use
  Company Number: PHEH2004US02219

PATIENT
  Age: 66 Year
  Sex: Male

DRUGS (2)
  1. CLOZARIL [Suspect]
     Indication: SCHIZOPHRENIA
     Dosage: 300 MG, QHS, ORAL
     Route: 048
     Dates: start: 20020801
  2. CELEXA [Concomitant]

REACTIONS (3)
  - CONVULSION [None]
  - LEUKOPENIA [None]
  - TONIC CLONIC MOVEMENTS [None]
